FAERS Safety Report 20994933 (Version 1)
Quarter: 2022Q2

REPORT INFORMATION
  Report Type: Spontaneous
  Country: US (occurrence: US)
  Receive Date: 20220622
  Receipt Date: 20220622
  Transmission Date: 20220721
  Serious: Yes (Other)
  Sender: FDA-Public Use
  Company Number: US-SUNOVION-2022SUN001824

PATIENT
  Sex: Male
  Weight: 136.05 kg

DRUGS (11)
  1. LUNESTA [Suspect]
     Active Substance: ESZOPICLONE
     Indication: Insomnia
     Dosage: 3 MG
     Route: 048
  2. LUNESTA [Suspect]
     Active Substance: ESZOPICLONE
     Dosage: 6 MG
     Route: 048
  3. LUNESTA [Suspect]
     Active Substance: ESZOPICLONE
     Dosage: 9 MG, HS
     Route: 048
  4. LUNESTA [Suspect]
     Active Substance: ESZOPICLONE
     Dosage: 6 MG
     Route: 048
  5. LUNESTA [Suspect]
     Active Substance: ESZOPICLONE
     Dosage: 3 MG
     Route: 048
  6. LUNESTA [Suspect]
     Active Substance: ESZOPICLONE
     Dosage: 3 MG
     Route: 048
  7. LYRICA [Suspect]
     Active Substance: PREGABALIN
     Route: 065
  8. TRAZODONE [Concomitant]
     Active Substance: TRAZODONE HYDROCHLORIDE
  9. NEURONTIN [Concomitant]
     Active Substance: GABAPENTIN
     Indication: Pain
  10. NEURONTIN [Concomitant]
     Active Substance: GABAPENTIN
     Indication: Neuralgia
  11. CLONAZEPAM [Concomitant]
     Active Substance: CLONAZEPAM

REACTIONS (23)
  - Blindness [Not Recovered/Not Resolved]
  - Ophthalmic herpes zoster [Not Recovered/Not Resolved]
  - Drug ineffective [Not Recovered/Not Resolved]
  - Irritability [Unknown]
  - Nerve injury [Unknown]
  - Nightmare [Not Recovered/Not Resolved]
  - Head injury [Not Recovered/Not Resolved]
  - Concussion [Not Recovered/Not Resolved]
  - Foot fracture [Not Recovered/Not Resolved]
  - Joint injury [Not Recovered/Not Resolved]
  - Decreased activity [Not Recovered/Not Resolved]
  - Panic attack [Recovering/Resolving]
  - Complex regional pain syndrome [Not Recovered/Not Resolved]
  - Insomnia [Unknown]
  - Fall [Not Recovered/Not Resolved]
  - Nausea [Not Recovered/Not Resolved]
  - Anxiety [Not Recovered/Not Resolved]
  - Neuralgia [Not Recovered/Not Resolved]
  - Muscle spasms [Not Recovered/Not Resolved]
  - Tremor [Not Recovered/Not Resolved]
  - Agitation [Unknown]
  - Injury [Not Recovered/Not Resolved]
  - Prescribed overdose [Unknown]

NARRATIVE: CASE EVENT DATE: 20140101
